FAERS Safety Report 6358988-8 (Version None)
Quarter: 2009Q3

REPORT INFORMATION
  Report Type: 
  Country: None (occurrence: None)
  Receive Date: 20090914
  Receipt Date: 20090831
  Transmission Date: 20100115
  Serious: Yes (Hospitalization)
  Sender: FDA-Public Use
  Company Number: 1000008740

PATIENT
  Age: 88 Year
  Sex: Female

DRUGS (11)
  1. MEMANTINE HCL [Suspect]
     Indication: DEMENTIA ALZHEIMER'S TYPE
     Dosage: 20 MG (10 MG, 2 IN 1 D), ORAL
     Route: 048
     Dates: end: 20090512
  2. MEMANTINE HCL [Suspect]
     Indication: DEMENTIA ALZHEIMER'S TYPE
     Dosage: ORAL
     Route: 048
     Dates: start: 20090515
  3. TIAPRIDAL (TABLETS) [Suspect]
     Indication: AGITATION
     Dosage: 150 MG (50 MG, 3 IN 1 D), ORAL
     Route: 048
     Dates: end: 20090512
  4. SERESTA (TABLETS) [Suspect]
     Indication: AGITATION
     Dosage: 50 MG (50 MG, 1 IN 1 D), ORAL
     Route: 048
     Dates: end: 20090512
  5. INEXIUM (TABLETS) [Suspect]
     Dosage: 20 MG (20 MG, 1 IN 1 D), ORAL
     Route: 048
     Dates: end: 20090512
  6. INEXIUM (TABLETS) [Suspect]
     Dosage: ORAL
     Route: 048
     Dates: start: 20090517
  7. KENZEN [Concomitant]
  8. TIMOPTIC [Concomitant]
  9. VASTAREL [Concomitant]
  10. DIFFU K [Concomitant]
  11. ACTONEL [Concomitant]

REACTIONS (7)
  - BRADYCARDIA [None]
  - BRADYPNOEA [None]
  - CEREBRAL ATROPHY [None]
  - HYPOTENSION [None]
  - HYPOTONIA [None]
  - MALAISE [None]
  - SOMNOLENCE [None]
